FAERS Safety Report 14618562 (Version 1)
Quarter: 2018Q1

REPORT INFORMATION
  Report Type: Spontaneous
  Country: DE (occurrence: DE)
  Receive Date: 20180309
  Receipt Date: 20180309
  Transmission Date: 20180509
  Serious: Yes (Other)
  Sender: FDA-Public Use
  Company Number: PHHY2018DE038799

PATIENT
  Sex: Male

DRUGS (3)
  1. SANDIMMUN [Suspect]
     Active Substance: CYCLOSPORINE
     Indication: HEART TRANSPLANT
     Route: 065
  2. CELLCEPT [Suspect]
     Active Substance: MYCOPHENOLATE MOFETIL\MYCOPHENOLATE MOFETIL HYDROCHLORIDE
     Indication: HEART TRANSPLANT
     Route: 065
  3. PROGRAF [Suspect]
     Active Substance: TACROLIMUS\TACROLIMUS ANHYDROUS
     Indication: HEART TRANSPLANT
     Route: 065

REACTIONS (4)
  - Parotid gland enlargement [Not Recovered/Not Resolved]
  - Polyneuropathy [Recovering/Resolving]
  - Facial paralysis [Not Recovered/Not Resolved]
  - Myocardial infarction [Unknown]
